FAERS Safety Report 19765900 (Version 1)
Quarter: 2021Q3

REPORT INFORMATION
  Report Type: Spontaneous
  Country: US (occurrence: US)
  Receive Date: 20210830
  Receipt Date: 20210830
  Transmission Date: 20211014
  Serious: Yes (Other)
  Sender: FDA-Public Use
  Company Number: US-PFIZER INC-202101081738

PATIENT
  Age: 54 Year
  Sex: Female

DRUGS (2)
  1. PRISTIQ EXTENDED?RELEASE [Suspect]
     Active Substance: DESVENLAFAXINE SUCCINATE
     Dosage: 50 MG, DAILY
  2. WARFARIN [Concomitant]
     Active Substance: WARFARIN
     Dosage: UNK

REACTIONS (6)
  - Suicidal ideation [Unknown]
  - Crying [Unknown]
  - Bronchitis [Unknown]
  - Anger [Unknown]
  - Feeling abnormal [Unknown]
  - Emotional disorder [Unknown]

NARRATIVE: CASE EVENT DATE: 2021
